FAERS Safety Report 6724502-8 (Version None)
Quarter: 2010Q2

REPORT INFORMATION
  Report Type: 
  Country: None (occurrence: None)
  Receive Date: 20100513
  Receipt Date: 20100505
  Transmission Date: 20101027
  Serious: Yes (Other)
  Sender: FDA-Public Use
  Company Number: US-PFIZER INC-2010057422

PATIENT
  Sex: Female
  Weight: 77 kg

DRUGS (1)
  1. AZITHROMYCIN [Suspect]
     Indication: SINUSITIS
     Dosage: 5 ML, UNK
     Route: 048
     Dates: start: 20100401, end: 20100401

REACTIONS (4)
  - CIRCUMSTANCE OR INFORMATION CAPABLE OF LEADING TO MEDICATION ERROR [None]
  - EYE SWELLING [None]
  - HEADACHE [None]
  - VISION BLURRED [None]
